FAERS Safety Report 4873657-9 (Version None)
Quarter: 2006Q1

REPORT INFORMATION
  Report Type: 
  Country: None (occurrence: None)
  Receive Date: 20060103
  Receipt Date: 20060103
  Transmission Date: 20060701
  Serious: Yes (Other)
  Sender: FDA-Public Use
  Company Number: None

PATIENT
  Age: 48 Year
  Sex: Female
  Weight: 122.4712 kg

DRUGS (3)
  1. VIOXX [Suspect]
     Indication: ARTHRITIS
     Dosage: 1 TABLET MORNING AND NIGHT ORAL
     Route: 048
  2. HYDROCHLOROTHIAZIDE [Concomitant]
  3. VALIUM [Concomitant]

REACTIONS (2)
  - PRURITUS [None]
  - RASH [None]
